FAERS Safety Report 8366269-6 (Version None)
Quarter: 2012Q2

REPORT INFORMATION
  Report Type: 
  Country: None (occurrence: None)
  Receive Date: 20120517
  Receipt Date: 20120510
  Transmission Date: 20120825
  Serious: No
  Sender: FDA-Public Use
  Company Number: PHHY2010AR19199

PATIENT
  Sex: Female

DRUGS (3)
  1. LOSARTAN POTASSIUM [Concomitant]
  2. GALVUS MET [Suspect]
     Indication: TYPE 2 DIABETES MELLITUS
     Dosage: 2 TABLETS DAILY
     Dates: start: 20100201
  3. LOPERAMIDE [Concomitant]

REACTIONS (6)
  - PYREXIA [None]
  - DISCOMFORT [None]
  - APHONIA [None]
  - BLOOD PRESSURE FLUCTUATION [None]
  - DIABETES MELLITUS INADEQUATE CONTROL [None]
  - OEDEMA PERIPHERAL [None]
